FAERS Safety Report 9240808 (Version 1)
Quarter: 2013Q1

REPORT INFORMATION
  Report Type: Spontaneous
  Country: US (occurrence: None)
  Receive Date: 20121120
  Receipt Date: 20121120
  Transmission Date: 20140127
  Serious: No
  Sender: FDA-Public Use
  Company Number: 1000039562

PATIENT
  Age: 41 Year
  Sex: Female

DRUGS (4)
  1. VIIBRYD [Suspect]
     Indication: DEPRESSION
     Dosage: 10 MG (10 MG, 1 IN 1 D), ORAL
     Route: 048
     Dates: start: 201210, end: 20121007
  2. VIIBRYD [Suspect]
     Indication: ANXIETY
     Dosage: 10 MG (10 MG, 1 IN 1 D), ORAL
     Route: 048
     Dates: start: 201210, end: 20121007
  3. NEXIUM (NEXIUM) (NEXIUM) [Concomitant]
     Dosage: 20 MG (20 MG, 1 IN 1 D)
  4. HYDROCHLOROTHIAZIDE (HYDROCHLOROTHIAZIDE) (HYDROCHLOROTHIAZIDE) [Concomitant]

REACTIONS (4)
  - Panic attack [None]
  - Anxiety [None]
  - Nervousness [None]
  - Drug ineffective [None]
